FAERS Safety Report 14101631 (Version 2)
Quarter: 2017Q4

REPORT INFORMATION
  Report Type: Spontaneous
  Country: US (occurrence: US)
  Receive Date: 20171018
  Receipt Date: 20171128
  Transmission Date: 20180321
  Serious: No
  Sender: FDA-Public Use
  Company Number: US-ASTRAZENECA-2017SF05552

PATIENT
  Age: 349 Month
  Sex: Female
  Weight: 83 kg

DRUGS (1)
  1. PULMICORT FLEXHALER [Suspect]
     Active Substance: BUDESONIDE
     Indication: ASTHMA
     Dosage: 160MCG, TWO PUFFS ONCE DAILY
     Route: 055
     Dates: start: 20171009

REACTIONS (3)
  - Exposure during pregnancy [Unknown]
  - Device defective [Unknown]
  - Wheezing [Unknown]
